FAERS Safety Report 9663517 (Version 1)
Quarter: 2013Q4

REPORT INFORMATION
  Report Type: Spontaneous
  Country: US (occurrence: US)
  Receive Date: 20131101
  Receipt Date: 20131101
  Transmission Date: 20140711
  Serious: No
  Sender: FDA-Public Use
  Company Number: US-ENDO PHARMACEUTICALS INC.-CLOZ20130012

PATIENT
  Age: 56 Year
  Sex: Female

DRUGS (4)
  1. CLONAZEPAM 0.5MG [Suspect]
     Indication: ANXIETY
     Dosage: 0.5 MG
     Route: 048
     Dates: start: 20130507, end: 20130507
  2. CLONAZEPAM 0.5MG [Suspect]
     Indication: INSOMNIA
  3. LORAZEPAM TABLETS [Concomitant]
     Indication: ANXIETY
     Dosage: UNKNOWN
     Route: 048
     Dates: end: 20130506
  4. LORAZEPAM TABLETS [Concomitant]
     Indication: INSOMNIA

REACTIONS (10)
  - Atrial flutter [Recovered/Resolved]
  - Hypotension [Recovered/Resolved]
  - Feeling abnormal [Recovered/Resolved]
  - Dyspnoea [Recovered/Resolved]
  - Hypopnoea [Recovered/Resolved]
  - Dizziness [Recovered/Resolved]
  - Somnolence [Recovered/Resolved]
  - Nightmare [Recovered/Resolved]
  - Headache [Recovered/Resolved]
  - Nausea [Recovered/Resolved]
